FAERS Safety Report 17124095 (Version 2)
Quarter: 2019Q4

REPORT INFORMATION
  Report Type: Spontaneous
  Country: BE (occurrence: BE)
  Receive Date: 20191206
  Receipt Date: 20191210
  Transmission Date: 20200122
  Serious: Yes (Hospitalization)
  Sender: FDA-Public Use
  Company Number: BE-MYLANLABS-2019M1119436

PATIENT
  Age: 70 Year
  Sex: Male

DRUGS (7)
  1. ZOCOR [Concomitant]
     Active Substance: SIMVASTATIN
     Dosage: 40 MILLIGRAM, QD
     Route: 048
  2. AMLODIPINE [Concomitant]
     Active Substance: AMLODIPINE BESYLATE
     Dosage: 5 MILLIGRAM, QD
     Route: 048
  3. OXALIPLATIN. [Suspect]
     Active Substance: OXALIPLATIN
     Indication: PRODUCT USED FOR UNKNOWN INDICATION
     Dosage: 3/2018 - 06/2018: ADJUVANTE CHEMOTHERAPIE MET FOLFOX 05/06/2019: START FOLFOX + VECTIBIX
     Route: 042
     Dates: start: 201803
  4. VECTIBIX [Concomitant]
     Active Substance: PANITUMUMAB
     Dosage: 05/06/2019: START FOLFOX + VECTIBIX
     Route: 042
     Dates: start: 20190605
  5. FLURACEDYL                         /00098801/ [Concomitant]
     Dosage: 3/2018 - 06/2018: ADJUVANTE CHEMOTHERAPIE MET FOLFOX 05/06/2019: START FOLFOX + VECTIBIX
     Dates: start: 201803
  6. ALLOPURINOL. [Concomitant]
     Active Substance: ALLOPURINOL
     Dosage: 150 MILLIGRAM, QD
     Route: 048
  7. BELSAR PLUS [Concomitant]
     Active Substance: HYDROCHLOROTHIAZIDE\OLMESARTAN MEDOXOMIL
     Dosage: 40 MILLIGRAM, QD
     Route: 048

REACTIONS (6)
  - Oxygen saturation decreased [Recovered/Resolved]
  - Hyperhidrosis [Recovered/Resolved]
  - Loss of consciousness [Recovered/Resolved]
  - Hypersensitivity [Recovered/Resolved]
  - Hypotension [Recovered/Resolved]
  - Urinary incontinence [Recovered/Resolved]

NARRATIVE: CASE EVENT DATE: 20190619
